FAERS Safety Report 7028381-3 (Version None)
Quarter: 2010Q4

REPORT INFORMATION
  Report Type: 
  Country: None (occurrence: None)
  Receive Date: 20101005
  Receipt Date: 20100928
  Transmission Date: 20110411
  Serious: Yes (Life-Threatening, Other)
  Sender: FDA-Public Use
  Company Number: CA-PFIZER INC-2010070239

PATIENT
  Age: 72 Year
  Sex: Female
  Weight: 65 kg

DRUGS (5)
  1. LIPITOR [Suspect]
     Dosage: 80 MG, 1X/DAY
     Route: 048
     Dates: end: 20080325
  2. TRACLEER [Interacting]
     Indication: PULMONARY EMBOLISM
     Dosage: 62.5 MG, 2X/DAY
     Route: 048
     Dates: start: 20071029, end: 20071210
  3. TRACLEER [Interacting]
     Dosage: 125 MG, 2X/DAY
     Route: 048
     Dates: start: 20071210, end: 20080325
  4. TRACLEER [Interacting]
     Dosage: 62.5 MG, 2X/DAY
     Route: 048
  5. WARFARIN [Concomitant]
     Dosage: UNK

REACTIONS (10)
  - ALANINE AMINOTRANSFERASE INCREASED [None]
  - ASPARTATE AMINOTRANSFERASE INCREASED [None]
  - BLOOD ALKALINE PHOSPHATASE INCREASED [None]
  - BLOOD BILIRUBIN INCREASED [None]
  - DRUG INTERACTION [None]
  - DYSPNOEA [None]
  - EXERCISE TOLERANCE DECREASED [None]
  - JAUNDICE [None]
  - MALAISE [None]
  - VOMITING [None]
